FAERS Safety Report 13391685 (Version 1)
Quarter: 2017Q1

REPORT INFORMATION
  Report Type: Spontaneous
  Country: US (occurrence: US)
  Receive Date: 20170331
  Receipt Date: 20170331
  Transmission Date: 20170429
  Serious: No
  Sender: FDA-Public Use
  Company Number: US-BRISTOL-MYERS SQUIBB COMPANY-BMS-2017-023551

PATIENT
  Sex: Female

DRUGS (1)
  1. DROXIA [Suspect]
     Active Substance: HYDROXYUREA
     Indication: BREAST CANCER FEMALE
     Dosage: 1000 MG, QD
     Route: 065

REACTIONS (1)
  - Adverse drug reaction [Unknown]
